FAERS Safety Report 8200623-8 (Version None)
Quarter: 2012Q1

REPORT INFORMATION
  Report Type: 
  Country: None (occurrence: None)
  Receive Date: 20120223
  Receipt Date: 20120214
  Transmission Date: 20120608
  Serious: Yes (Other)
  Sender: FDA-Public Use
  Company Number: 2012031164

PATIENT
  Age: 59 Year
  Sex: Male
  Weight: 70.3075 kg

DRUGS (6)
  1. BENAZEPRIL HYDROCHLORIDE [Concomitant]
  2. HIZENTRA [Suspect]
  3. MULTIPLE VITAMINS (MULTIPLE VITAMINS) [Concomitant]
  4. HIZENTRA [Suspect]
     Indication: CHRONIC SINUSITIS
  5. HIZENTRA [Suspect]
     Indication: IMMUNODEFICIENCY COMMON VARIABLE
  6. PROBIOTIC (LACTOBACILLUS REUTERI) [Concomitant]

REACTIONS (1)
  - RESPIRATORY TRACT INFECTION [None]
